FAERS Safety Report 26163965 (Version 1)
Quarter: 2025Q4

REPORT INFORMATION
  Report Type: Spontaneous
  Country: CA (occurrence: CA)
  Receive Date: 20251216
  Receipt Date: 20251216
  Transmission Date: 20260118
  Serious: Yes (Other)
  Sender: PFIZER
  Company Number: CA-TAKEDA-2025TUS111834

PATIENT
  Sex: Female

DRUGS (1)
  1. PANTOPRAZOLE SODIUM [Suspect]
     Active Substance: PANTOPRAZOLE SODIUM
     Dosage: UNK

REACTIONS (6)
  - Pemphigoid [Unknown]
  - Renal failure [Unknown]
  - Angioedema [Unknown]
  - Cough [Unknown]
  - Dyspnoea [Unknown]
  - Hypersensitivity [Unknown]
